FAERS Safety Report 25670855 (Version 1)
Quarter: 2025Q3

REPORT INFORMATION
  Report Type: Spontaneous
  Country: CA (occurrence: CA)
  Receive Date: 20250812
  Receipt Date: 20250812
  Transmission Date: 20251020
  Serious: Yes (Other)
  Sender: B. BRAUN MEDICAL INC.
  Company Number: None

PATIENT
  Age: 59 Year
  Sex: Male

DRUGS (2)
  1. MIDAZOLAM [Suspect]
     Active Substance: MIDAZOLAM
  2. FENTANYL [Suspect]
     Active Substance: FENTANYL

REACTIONS (3)
  - Hyperkeratosis [Unknown]
  - Hypoperfusion [Unknown]
  - Oxygen saturation decreased [Unknown]
